FAERS Safety Report 21758862 (Version 2)
Quarter: 2022Q4

REPORT INFORMATION
  Report Type: Report from Study
  Country: US (occurrence: US)
  Receive Date: 20221221
  Receipt Date: 20221230
  Transmission Date: 20230112
  Serious: Yes (Death, Other)
  Sender: FDA-Public Use
  Company Number: US-009507513-2212USA006272

PATIENT
  Age: 66 Year
  Sex: Female

DRUGS (1)
  1. KEYTRUDA [Suspect]
     Active Substance: PEMBROLIZUMAB
     Indication: Breast cancer stage IV
     Dosage: UNK
     Route: 042
     Dates: start: 202110, end: 20220523

REACTIONS (2)
  - Malignant neoplasm progression [Fatal]
  - Hospice care [Unknown]

NARRATIVE: CASE EVENT DATE: 20220601
